FAERS Safety Report 20499185 (Version 1)
Quarter: 2022Q1

REPORT INFORMATION
  Report Type: Spontaneous
  Country: US (occurrence: US)
  Receive Date: 20220222
  Receipt Date: 20220222
  Transmission Date: 20220424
  Serious: Yes (Death, Hospitalization)
  Sender: FDA-Public Use
  Company Number: US-SAMSUNG BIOEPIS-SB-2022-04120

PATIENT
  Age: 30 Year
  Sex: Male

DRUGS (3)
  1. INFLIXIMAB [Suspect]
     Active Substance: INFLIXIMAB
     Indication: Pneumonitis
     Dosage: UNKNOWN
     Route: 065
  2. NIVOLUMAB [Suspect]
     Active Substance: NIVOLUMAB
     Indication: Acute myeloid leukaemia
     Dosage: UNKNOWN
     Route: 065
  3. IPILIMUMAB [Suspect]
     Active Substance: IPILIMUMAB
     Indication: Acute myeloid leukaemia
     Dosage: UNKNOWN
     Route: 065

REACTIONS (8)
  - Respiratory disorder [Fatal]
  - Drug-induced liver injury [Recovered/Resolved]
  - Hypophysitis [Unknown]
  - Pneumonitis [Unknown]
  - Autoimmune hepatitis [Recovered/Resolved]
  - Pneumocystis jirovecii pneumonia [Unknown]
  - Hepatitis [Recovered/Resolved]
  - Off label use [Unknown]
